FAERS Safety Report 19191227 (Version 4)
Quarter: 2023Q4

REPORT INFORMATION
  Report Type: Spontaneous
  Country: US (occurrence: US)
  Receive Date: 20210429
  Receipt Date: 20231117
  Transmission Date: 20240110
  Serious: Yes (Other)
  Sender: FDA-Public Use
  Company Number: US-SA-2021SA136535

PATIENT
  Age: 61 Year
  Sex: Male

DRUGS (3)
  1. HYDROCORTISONE [Suspect]
     Active Substance: HYDROCORTISONE
     Indication: Evidence based treatment
     Dosage: UNK
  2. HYDROCORTISONE [Suspect]
     Active Substance: HYDROCORTISONE
     Indication: Adrenal insufficiency
  3. LEVOTHYROXINE SODIUM [Suspect]
     Active Substance: LEVOTHYROXINE SODIUM
     Indication: Hypothyroidism
     Dosage: 50 UG, QD, LOW DOSE

REACTIONS (6)
  - Diabetes insipidus [Recovering/Resolving]
  - Nocturia [Recovering/Resolving]
  - Polyuria [Recovering/Resolving]
  - Hypernatraemia [Recovering/Resolving]
  - Insomnia [Recovering/Resolving]
  - Unmasking of previously unidentified disease [Recovering/Resolving]
